FAERS Safety Report 19177113 (Version 1)
Quarter: 2021Q2

REPORT INFORMATION
  Report Type: Spontaneous
  Country: US (occurrence: US)
  Receive Date: 20210424
  Receipt Date: 20210424
  Transmission Date: 20210717
  Serious: No
  Sender: FDA-Public Use
  Company Number: US-ASTRAZENECA-2021A282905

PATIENT
  Age: 19886 Day
  Sex: Female
  Weight: 70.3 kg

DRUGS (1)
  1. BYDUREON BCISE [Suspect]
     Active Substance: EXENATIDE
     Indication: DIABETES MELLITUS
     Route: 065
     Dates: start: 202004

REACTIONS (4)
  - Device leakage [Unknown]
  - Injection site pain [Unknown]
  - Injection site mass [Unknown]
  - Device malfunction [Unknown]

NARRATIVE: CASE EVENT DATE: 20210315
